FAERS Safety Report 14919116 (Version 4)
Quarter: 2020Q3

REPORT INFORMATION
  Report Type: Spontaneous
  Country: GB (occurrence: GB)
  Receive Date: 20180521
  Receipt Date: 20200721
  Transmission Date: 20201102
  Serious: Yes (Other)
  Sender: FDA-Public Use
  Company Number: GB-BAYER-2018-082324

PATIENT
  Age: 33 Year
  Sex: Female

DRUGS (1)
  1. YASMIN ED, FILM?COATED TABLETS, 0.03 MG/3 MG [Suspect]
     Active Substance: DROSPIRENONE\ETHINYL ESTRADIOL
     Dosage: UNK
     Route: 048
     Dates: start: 20050713, end: 20170112

REACTIONS (2)
  - Invasive ductal breast carcinoma [None]
  - Infertility female [None]

NARRATIVE: CASE EVENT DATE: 20170106
